FAERS Safety Report 9071054 (Version 1)
Quarter: 2013Q1

REPORT INFORMATION
  Report Type: Spontaneous
  Country: US (occurrence: US)
  Receive Date: 20130206
  Receipt Date: 20130206
  Transmission Date: 20140127
  Serious: No
  Sender: FDA-Public Use
  Company Number: US-ALLERGAN-1208286US

PATIENT
  Sex: Female
  Weight: 117 kg

DRUGS (3)
  1. RESTASIS? [Suspect]
     Indication: CORNEAL EROSION
     Dosage: 2 GTT, UNK
     Route: 047
     Dates: start: 201201, end: 201203
  2. RESTASIS? [Suspect]
     Indication: DRY EYE
  3. SYSTANE ULTRA [Concomitant]
     Indication: DRY EYE
     Dosage: 2 GTT, BID
     Route: 047

REACTIONS (5)
  - Ocular hyperaemia [Recovered/Resolved]
  - Eye irritation [Recovered/Resolved]
  - Eye pruritus [Recovered/Resolved]
  - Eye pain [Recovered/Resolved]
  - Eye irritation [Recovered/Resolved]
